FAERS Safety Report 21990619 (Version 1)
Quarter: 2023Q1

REPORT INFORMATION
  Report Type: Spontaneous
  Country: US (occurrence: None)
  Receive Date: 20230213
  Receipt Date: 20230213
  Transmission Date: 20230418
  Serious: No
  Sender: FDA-Public Use
  Company Number: None

PATIENT
  Sex: Male

DRUGS (1)
  1. EVEROLIMUS [Suspect]
     Active Substance: EVEROLIMUS
     Dosage: FREQUENCY : DAILY;?
     Route: 048
     Dates: start: 20221218

REACTIONS (6)
  - Fatigue [None]
  - Therapy interrupted [None]
  - Therapy cessation [None]
  - Loss of personal independence in daily activities [None]
  - Hypertension [None]
  - Dyspnoea [None]
